FAERS Safety Report 25101874 (Version 1)
Quarter: 2025Q1

REPORT INFORMATION
  Report Type: Spontaneous
  Country: VN (occurrence: VN)
  Receive Date: 20250320
  Receipt Date: 20250320
  Transmission Date: 20250409
  Serious: Yes (Hospitalization)
  Sender: NOVARTIS
  Company Number: VN-002147023-NVSC2025VN046487

PATIENT
  Age: 30 Year
  Sex: Female

DRUGS (3)
  1. TRILEPTAL [Suspect]
     Active Substance: OXCARBAZEPINE
     Indication: Trigeminal neuralgia
     Dosage: 1 DOSAGE FORM, QD (TABLET) (ONCE AT NIGHT)
     Route: 065
  2. AMITRIPTYLINE [Concomitant]
     Active Substance: AMITRIPTYLINE
     Indication: Product used for unknown indication
     Dosage: 1 DOSAGE FORM, QD (TABLET) (ONCE AT NIGHT)
     Route: 065
  3. QUETIAPINE [Concomitant]
     Active Substance: QUETIAPINE
     Indication: Product used for unknown indication
     Dosage: UNK UNK, QD (HALF TABLET AT NIGHT)
     Route: 065

REACTIONS (4)
  - Stevens-Johnson syndrome [Unknown]
  - Pruritus [Unknown]
  - Rash [Unknown]
  - Off label use [Unknown]

NARRATIVE: CASE EVENT DATE: 20250310
